FAERS Safety Report 6402440-8 (Version None)
Quarter: 2009Q4

REPORT INFORMATION
  Report Type: 
  Country: None (occurrence: None)
  Receive Date: 20091009
  Receipt Date: 20090930
  Transmission Date: 20100525
  Serious: Yes (Death, Hospitalization)
  Sender: FDA-Public Use
  Company Number: ADR34072009

PATIENT
  Age: 93 Year
  Sex: Female

DRUGS (4)
  1. CIPROFLOXACIN [Suspect]
     Indication: URINARY TRACT INFECTION
     Dosage: ORAL
     Route: 048
  2. ASPIRIN [Concomitant]
  3. ISOSORBIDE [Concomitant]
  4. RAMIPRIL [Concomitant]

REACTIONS (4)
  - DELIRIUM [None]
  - MULTI-ORGAN FAILURE [None]
  - TACHYCARDIA [None]
  - TOXIC EPIDERMAL NECROLYSIS [None]
